FAERS Safety Report 8950474 (Version 3)
Quarter: 2013Q1

REPORT INFORMATION
  Report Type: Spontaneous
  Country: US (occurrence: US)
  Receive Date: 20121207
  Receipt Date: 20130131
  Transmission Date: 20140127
  Serious: No
  Sender: FDA-Public Use
  Company Number: US-PFIZER INC-2012305337

PATIENT
  Age: 65 Year
  Sex: Male
  Weight: 77.1 kg

DRUGS (10)
  1. ADVIL [Suspect]
     Indication: PAIN IN EXTREMITY
     Dosage: UNK, AS NEEDED
     Route: 048
     Dates: end: 20121204
  2. POTASSIUM CHLORIDE [Suspect]
     Indication: MINERAL SUPPLEMENTATION
     Dosage: UNK
  3. POTASSIUM CHLORIDE [Suspect]
     Indication: SUPPLEMENTATION THERAPY
  4. CLARITIN [Suspect]
     Indication: EYE PRURITUS
     Dosage: UNK
  5. ATENOLOL [Suspect]
     Indication: HYPERTENSION
     Dosage: 25 MG, UNK
     Route: 048
  6. HYDROCHLOROTHIAZIDE/TRIAMTERENE [Concomitant]
     Indication: HYPERTENSION
     Dosage: 1 TABLET OF 25MG/37.5 MG, 1X/DAY
     Route: 048
     Dates: start: 201111, end: 20121214
  7. ATENOLOL [Concomitant]
     Dosage: UNK
  8. POTASSIUM [Concomitant]
     Dosage: UNK
  9. TRIAMTERENE [Concomitant]
     Dosage: UNK
  10. VITAMIN B12 [Concomitant]
     Indication: ANAEMIA
     Dosage: UNK

REACTIONS (5)
  - Drug interaction [Unknown]
  - Eczema [Recovering/Resolving]
  - Rash [Recovering/Resolving]
  - Pruritus [Recovering/Resolving]
  - Pain [Recovering/Resolving]
